FAERS Safety Report 9174176 (Version 1)
Quarter: 2013Q1

REPORT INFORMATION
  Report Type: Spontaneous
  Country: GB (occurrence: GB)
  Receive Date: 20130320
  Receipt Date: 20130320
  Transmission Date: 20140127
  Serious: Yes (Other)
  Sender: FDA-Public Use
  Company Number: PHHY2013GB024631

PATIENT
  Age: 45 Year
  Sex: Female

DRUGS (5)
  1. CO-CODAMOL [Suspect]
     Indication: OSTEOARTHRITIS
     Route: 048
  2. CO-CODAMOL [Suspect]
     Dosage: 8/500MG
     Route: 048
  3. CO-CODAMOL [Suspect]
     Dosage: 8/500MG
     Route: 048
  4. NAPROXEN [Concomitant]
  5. OMEPRAZOLE [Concomitant]

REACTIONS (10)
  - Diplopia [Recovering/Resolving]
  - Lethargy [Recovering/Resolving]
  - Aphasia [Recovering/Resolving]
  - Disturbance in attention [Recovering/Resolving]
  - Thirst [Recovering/Resolving]
  - Dry mouth [Recovering/Resolving]
  - Malaise [Unknown]
  - Fatigue [Recovering/Resolving]
  - Constipation [Recovering/Resolving]
  - Dizziness [Recovering/Resolving]
